FAERS Safety Report 8212209-X (Version None)
Quarter: 2012Q1

REPORT INFORMATION
  Report Type: 
  Country: None (occurrence: None)
  Receive Date: 20120315
  Receipt Date: 20120305
  Transmission Date: 20120608
  Serious: Yes (Other)
  Sender: FDA-Public Use
  Company Number: CZ-ACTELION-A-CH2012-60469

PATIENT
  Sex: Female
  Weight: 51 kg

DRUGS (6)
  1. SERTRALINE HYDROCHLORIDE [Concomitant]
  2. MILGAMMA [Concomitant]
  3. THIAMINE HCL [Concomitant]
  4. ZAVESCA [Suspect]
     Dosage: 100 MG, TID
     Route: 048
     Dates: start: 20120131, end: 20120222
  5. ZAVESCA [Suspect]
     Indication: NIEMANN-PICK DISEASE
     Dosage: 200 MG, TID
     Route: 048
     Dates: start: 20110915, end: 20120130
  6. CYANOCOBALAMIN [Concomitant]

REACTIONS (5)
  - DISORIENTATION [None]
  - CONDITION AGGRAVATED [None]
  - MENTAL STATUS CHANGES [None]
  - MEMORY IMPAIRMENT [None]
  - CONFUSIONAL STATE [None]
